FAERS Safety Report 24794630 (Version 3)
Quarter: 2025Q1

REPORT INFORMATION
  Report Type: Spontaneous
  Country: CA (occurrence: EG)
  Receive Date: 20241231
  Receipt Date: 20250115
  Transmission Date: 20250409
  Serious: Yes (Death, Other)
  Sender: MERCK
  Company Number: CA-009507513-2412CAN010154

PATIENT
  Sex: Female

DRUGS (1)
  1. KEYTRUDA [Suspect]
     Active Substance: PEMBROLIZUMAB
     Indication: Adenocarcinoma gastric
     Route: 065

REACTIONS (10)
  - Myasthenia gravis [Fatal]
  - Atrioventricular block complete [Fatal]
  - Myositis [Fatal]
  - Neuropathy peripheral [Unknown]
  - Respiratory muscle weakness [Unknown]
  - Respiratory failure [Unknown]
  - Muscular weakness [Unknown]
  - Ill-defined disorder [Unknown]
  - Aphonia [Unknown]
  - Off label use [Unknown]
